FAERS Safety Report 5985987-8 (Version None)
Quarter: 2008Q4

REPORT INFORMATION
  Report Type: 
  Country: None (occurrence: None)
  Receive Date: 20081205
  Receipt Date: 20081205
  Transmission Date: 20090506
  Serious: No
  Sender: FDA-Public Use
  Company Number: None

PATIENT
  Age: 71 Year
  Sex: Male
  Weight: 82.73 kg

DRUGS (2)
  1. WARFARIN SODIUM [Suspect]
     Dosage: 5 MG EVERY DAY PO
     Route: 048
     Dates: start: 20080726, end: 20080727
  2. WARFARIN SODIUM [Suspect]
     Dosage: MG OTHER PO
     Route: 048
     Dates: start: 20080728, end: 20080729

REACTIONS (2)
  - EPISTAXIS [None]
  - THROMBOSIS [None]
